FAERS Safety Report 19489602 (Version 1)
Quarter: 2021Q3

REPORT INFORMATION
  Report Type: Spontaneous
  Country: CA (occurrence: CA)
  Receive Date: 20210704
  Receipt Date: 20210704
  Transmission Date: 20211014
  Serious: Yes (Other)
  Sender: FDA-Public Use
  Company Number: CA-TEVA-2021-CA-1928712

PATIENT
  Age: 52 Year
  Sex: Female

DRUGS (33)
  1. METHOTREXATE. [Suspect]
     Active Substance: METHOTREXATE
     Indication: ARTHRALGIA
     Route: 065
  2. HYDROXYCHLOROQUINE SULFATE. [Suspect]
     Active Substance: HYDROXYCHLOROQUINE SULFATE
     Route: 065
  3. SULFASALAZINE. [Suspect]
     Active Substance: SULFASALAZINE
     Indication: ARTHRALGIA
     Route: 065
  4. AZATHIOPRINE. [Concomitant]
     Active Substance: AZATHIOPRINE
  5. OMEGA 3 [FISH OIL] [Concomitant]
     Active Substance: FISH OIL
  6. TOPIRAMATE. [Concomitant]
     Active Substance: TOPIRAMATE
  7. METHOTREXATE. [Suspect]
     Active Substance: METHOTREXATE
     Indication: PAIN IN EXTREMITY
     Route: 065
  8. HYDROXYCHLOROQUINE SULFATE. [Suspect]
     Active Substance: HYDROXYCHLOROQUINE SULFATE
     Indication: ARTHRALGIA
     Route: 065
  9. CEFIXIME. [Concomitant]
     Active Substance: CEFIXIME
  10. HYDROXYCHLOROQUINE SULFATE. [Concomitant]
     Active Substance: HYDROXYCHLOROQUINE SULFATE
  11. LEFLUNOMIDE. [Concomitant]
     Active Substance: LEFLUNOMIDE
  12. MYCOPHENOLATE MOFETIL HYDROCHLORIDE [Concomitant]
     Active Substance: MYCOPHENOLATE MOFETIL HYDROCHLORIDE
  13. PREDNISONE. [Concomitant]
     Active Substance: PREDNISONE
  14. HYDROXYCHLOROQUINE SULFATE. [Suspect]
     Active Substance: HYDROXYCHLOROQUINE SULFATE
     Route: 065
  15. SULFASALAZINE. [Suspect]
     Active Substance: SULFASALAZINE
     Route: 065
  16. FOLIC ACID. [Concomitant]
     Active Substance: FOLIC ACID
  17. LEFLUNOMIDE. [Concomitant]
     Active Substance: LEFLUNOMIDE
  18. RALIVIA [Concomitant]
     Active Substance: TRAMADOL HYDROCHLORIDE
  19. METHOTREXATE. [Suspect]
     Active Substance: METHOTREXATE
     Route: 065
  20. METHOTREXATE. [Suspect]
     Active Substance: METHOTREXATE
     Route: 065
  21. HYDROCHLOROTHIAZIDE. [Concomitant]
     Active Substance: HYDROCHLOROTHIAZIDE
  22. TEMAZEPAM. [Concomitant]
     Active Substance: TEMAZEPAM
  23. VITAMIN D [Concomitant]
     Active Substance: VITAMIN D NOS
  24. HYDROXYCHLOROQUINE SULFATE. [Suspect]
     Active Substance: HYDROXYCHLOROQUINE SULFATE
     Indication: PAIN IN EXTREMITY
     Route: 065
  25. ACETAMINOPHEN/OXYCODONE HYDROCHLORIDE [Concomitant]
     Active Substance: ACETAMINOPHEN\OXYCODONE HYDROCHLORIDE
     Indication: PAIN
  26. DILTIAZEM. [Concomitant]
     Active Substance: DILTIAZEM
  27. SULFASALAZINE. [Suspect]
     Active Substance: SULFASALAZINE
     Indication: PAIN IN EXTREMITY
     Route: 065
  28. FERROUS FUMARATE [Concomitant]
     Active Substance: FERROUS FUMARATE
  29. SALAZOPYRIN [Concomitant]
     Active Substance: SULFASALAZINE
  30. TRAMACET [Concomitant]
     Active Substance: ACETAMINOPHEN\TRAMADOL
     Dosage: 4 DOSAGE FORMS DAILY;
  31. SULFASALAZINE. [Suspect]
     Active Substance: SULFASALAZINE
     Route: 065
  32. AMITRIPTYLINE [Concomitant]
     Active Substance: AMITRIPTYLINE
  33. FOLIC ACID. [Concomitant]
     Active Substance: FOLIC ACID

REACTIONS (16)
  - Liver function test increased [Unknown]
  - Road traffic accident [Unknown]
  - Systemic lupus erythematosus [Unknown]
  - Drug ineffective for unapproved indication [Unknown]
  - Depression [Unknown]
  - Fibromyalgia [Unknown]
  - Myofascial pain syndrome [Unknown]
  - Osteoarthritis [Unknown]
  - Off label use [Unknown]
  - Polyarthritis [Unknown]
  - Foot deformity [Unknown]
  - Photosensitivity reaction [Unknown]
  - Rheumatoid arthritis [Unknown]
  - Aphthous ulcer [Unknown]
  - Back pain [Unknown]
  - Migraine [Unknown]
